FAERS Safety Report 18665066 (Version 1)
Quarter: 2020Q4

REPORT INFORMATION
  Report Type: Spontaneous
  Country: US (occurrence: US)
  Receive Date: 20201225
  Receipt Date: 20201225
  Transmission Date: 20210114
  Serious: Yes (Life-Threatening)
  Sender: FDA-Public Use
  Company Number: US-ASTRAZENECA-2020SF73288

PATIENT
  Sex: Female

DRUGS (1)
  1. IMFINZI [Suspect]
     Active Substance: DURVALUMAB
     Indication: NEOPLASM MALIGNANT
     Dosage: UNKNOWN
     Route: 042
     Dates: start: 202005

REACTIONS (6)
  - Glaucoma [Unknown]
  - Brain oedema [Unknown]
  - Heart rate increased [Unknown]
  - Exophthalmos [Unknown]
  - Eye swelling [Unknown]
  - Myalgia [Unknown]
